FAERS Safety Report 23148233 (Version 2)
Quarter: 2023Q4

REPORT INFORMATION
  Report Type: Report from Study
  Country: US (occurrence: US)
  Receive Date: 20231106
  Receipt Date: 20231118
  Transmission Date: 20240110
  Serious: Yes (Other)
  Sender: FDA-Public Use
  Company Number: US-TEVA-2023-US-2941905

PATIENT
  Age: 19 Year
  Sex: Female

DRUGS (3)
  1. CLARAVIS [Suspect]
     Active Substance: ISOTRETINOIN
     Indication: Product used for unknown indication
     Dosage: 60 MILLIGRAM DAILY; STRENGTH: 40 MG
     Dates: start: 20230831
  2. CLARAVIS [Suspect]
     Active Substance: ISOTRETINOIN
     Dosage: 80 MILLIGRAM DAILY;
     Dates: start: 202310, end: 20231026
  3. CLARAVIS [Suspect]
     Active Substance: ISOTRETINOIN
     Dosage: 40 MILLIGRAM DAILY;
     Dates: start: 202310, end: 20231026

REACTIONS (3)
  - Unintended pregnancy [Unknown]
  - Vaginal haemorrhage [Unknown]
  - Xerosis [Recovering/Resolving]

NARRATIVE: CASE EVENT DATE: 20230901
